FAERS Safety Report 7601990-6 (Version None)
Quarter: 2011Q3

REPORT INFORMATION
  Report Type: 
  Country: None (occurrence: None)
  Receive Date: 20110711
  Receipt Date: 20110701
  Transmission Date: 20111222
  Serious: Yes (Death, Other)
  Sender: FDA-Public Use
  Company Number: JP-PFIZER INC-2011138404

PATIENT
  Age: 84 Year
  Sex: Male

DRUGS (11)
  1. FAMOTIDINE [Concomitant]
     Dosage: UNK
     Route: 048
  2. NEOPHYLLIN [Concomitant]
     Dosage: UNK
     Route: 048
  3. MONTELUKAST SODIUM [Concomitant]
     Dosage: UNK
     Route: 048
  4. LOSARTAN POTASSIUM AND HYDROCHLOROTHIAZIDE [Concomitant]
     Dosage: UNK
     Route: 048
  5. TAMSULOSIN HCL [Concomitant]
     Route: 048
  6. MUCODYNE [Concomitant]
     Dosage: UNK
     Route: 048
  7. CONIEL [Concomitant]
     Dosage: UNK
     Route: 048
  8. MAGNESIUM OXIDE [Concomitant]
     Dosage: UNK
     Route: 048
  9. ZOSYN [Suspect]
     Indication: PNEUMONIA
     Dosage: 2.25 G DAILY
     Route: 041
     Dates: start: 20110510, end: 20110510
  10. ADVAIR DISKUS 100/50 [Concomitant]
     Dosage: UNK
     Route: 050
  11. UNIPHYL [Concomitant]
     Dosage: UNK
     Route: 048

REACTIONS (1)
  - ANAPHYLACTIC SHOCK [None]
